FAERS Safety Report 6386012-X (Version None)
Quarter: 2009Q4

REPORT INFORMATION
  Report Type: 
  Country: None (occurrence: None)
  Receive Date: 20091002
  Receipt Date: 20081110
  Transmission Date: 20100525
  Serious: No
  Sender: FDA-Public Use
  Company Number: US-ASTRAZENECA-2008UW25115

PATIENT
  Age: 51 Year
  Sex: Female
  Weight: 79.4 kg

DRUGS (4)
  1. ARIMIDEX [Suspect]
     Indication: BREAST CANCER FEMALE
     Route: 048
  2. VITAMINS [Concomitant]
  3. LISINOPRIL [Concomitant]
  4. BISOPROLOL [Concomitant]

REACTIONS (1)
  - DYSPAREUNIA [None]
